FAERS Safety Report 17722660 (Version 5)
Quarter: 2020Q2

REPORT INFORMATION
  Report Type: Report from Study
  Country: IN (occurrence: IN)
  Receive Date: 20200429
  Receipt Date: 20200616
  Transmission Date: 20200714
  Serious: Yes (Disabling, Other)
  Sender: FDA-Public Use
  Company Number: NVSC2019IN072362

PATIENT
  Age: 31 Year
  Sex: Female
  Weight: 59 kg

DRUGS (9)
  1. GALVUS MET [Suspect]
     Active Substance: METFORMIN HYDROCHLORIDE\VILDAGLIPTIN
     Dosage: (PRE MEAL), STARTED AGAIN SINCE 1 MONTH
     Route: 048
  2. METFORMIN [Suspect]
     Active Substance: METFORMIN HYDROCHLORIDE
     Dosage: 550 MG
     Route: 048
  3. GANATON TOTAL [Concomitant]
     Indication: ABDOMINAL DISCOMFORT
     Dosage: UNK
     Route: 048
  4. GALVUS MET [Suspect]
     Active Substance: METFORMIN HYDROCHLORIDE\VILDAGLIPTIN
     Dosage: 1 DF, (50/500MG)
     Route: 065
     Dates: start: 2018, end: 202001
  5. GALVUS MET [Suspect]
     Active Substance: METFORMIN HYDROCHLORIDE\VILDAGLIPTIN
     Dosage: 1 DF, (50/500MG)
     Route: 048
     Dates: start: 20200305
  6. GALVUS MET [Suspect]
     Active Substance: METFORMIN HYDROCHLORIDE\VILDAGLIPTIN
     Indication: DIABETES MELLITUS
     Dosage: 1 DF, QD (50/500)((0-1-0,PRE MEAL) (SINCE 2 YEARS)
     Route: 048
  7. GALVUS MET [Suspect]
     Active Substance: METFORMIN HYDROCHLORIDE\VILDAGLIPTIN
     Dosage: 1 DF, (50/500MG)
     Route: 048
     Dates: start: 20200210
  8. METFORMIN [Suspect]
     Active Substance: METFORMIN HYDROCHLORIDE
     Indication: DIABETES MELLITUS
     Dosage: 50 OT
     Route: 048
  9. PROTHIADEN [Concomitant]
     Active Substance: DOTHIEPIN HYDROCHLORIDE
     Indication: PRODUCT USED FOR UNKNOWN INDICATION
     Dosage: UNK
     Route: 048

REACTIONS (13)
  - Overweight [Unknown]
  - Dizziness [Recovered/Resolved]
  - Burning sensation [Not Recovered/Not Resolved]
  - Urinary tract infection [Unknown]
  - Hyperglycaemia [Unknown]
  - Tremor [Unknown]
  - Diabetic neuropathy [Unknown]
  - Blood glucose increased [Unknown]
  - Sleep disorder [Unknown]
  - Neuropathy peripheral [Unknown]
  - Chills [Unknown]
  - Headache [Not Recovered/Not Resolved]
  - Fatigue [Unknown]

NARRATIVE: CASE EVENT DATE: 201906
